FAERS Safety Report 5698391-7 (Version None)
Quarter: 2008Q2

REPORT INFORMATION
  Report Type: 
  Country: None (occurrence: None)
  Receive Date: 20080403
  Receipt Date: 20080320
  Transmission Date: 20081010
  Serious: Yes (Life-Threatening)
  Sender: FDA-Public Use
  Company Number: 2008S1004812

PATIENT
  Age: 77 Year
  Sex: Female

DRUGS (10)
  1. CIPROFLOXACIN [Suspect]
     Indication: DRUG USE FOR UNKNOWN INDICATION
  2. SIMVASTATIN [Suspect]
     Dosage: 40 MG
  3. ASPIRIN /00002701/ (ACETYLSALICYLIC ACID) (CON.) [Concomitant]
  4. CIMETIDINE (CIMETIDINE) (CON.) [Concomitant]
  5. FUROSEMIDE (FUROSEMIDE) (CON.) [Concomitant]
  6. ISOSORBIDE MONONITRATE (ISOSORBIDE MONONITRATE) (CON.) [Concomitant]
  7. LEVOTHYROXINE (LEVOTHYROXINE) (CON.) [Concomitant]
  8. NICORANDIL (NICORANDIL) (CON.) [Concomitant]
  9. PINDOLOL (PINDOLOL) (CON.) [Concomitant]
  10. SIMVASTATIN (SIMVASTATIN) (CON.) [Concomitant]

REACTIONS (5)
  - BLOOD CREATININE INCREASED [None]
  - CHROMATURIA [None]
  - DRUG INTERACTION [None]
  - DYSSTASIA [None]
  - RHABDOMYOLYSIS [None]
